FAERS Safety Report 25948492 (Version 1)
Quarter: 2025Q4

REPORT INFORMATION
  Report Type: Spontaneous
  Country: US (occurrence: US)
  Receive Date: 20251022
  Receipt Date: 20251022
  Transmission Date: 20260117
  Serious: No
  Sender: SANOFI AVENTIS
  Company Number: US-SANOFI-02693100

PATIENT
  Age: 37 Year
  Sex: Female

DRUGS (4)
  1. DUPIXENT [Suspect]
     Active Substance: DUPILUMAB
     Indication: Dermatitis atopic
     Dosage: 300 MG
  2. BUSPIRONE [Concomitant]
     Active Substance: BUSPIRONE HYDROCHLORIDE
  3. NURTEC ODT [Concomitant]
     Active Substance: RIMEGEPANT SULFATE
  4. RINVOQ [Concomitant]
     Active Substance: UPADACITINIB

REACTIONS (1)
  - Corneal oedema [Recovered/Resolved]
